FAERS Safety Report 20995645 (Version 3)
Quarter: 2025Q2

REPORT INFORMATION
  Report Type: Spontaneous
  Country: IT (occurrence: IT)
  Receive Date: 20220623
  Receipt Date: 20250621
  Transmission Date: 20250716
  Serious: Yes (Hospitalization)
  Sender: AUROBINDO
  Company Number: IT-STADA-250784

PATIENT
  Age: 30 Year
  Sex: Male

DRUGS (5)
  1. IBUPROFEN [Suspect]
     Active Substance: IBUPROFEN
     Indication: Pericarditis
     Dosage: 600 MILLIGRAM, 3 TIMES A DAY
     Route: 065
  2. IBUPROFEN [Suspect]
     Active Substance: IBUPROFEN
     Route: 065
  3. Comirnaty [Concomitant]
     Indication: Product used for unknown indication
     Route: 065
  4. COLCHICINE [Concomitant]
     Active Substance: COLCHICINE
     Indication: Pericarditis
     Dosage: 0.5 MILLIGRAM, TWO TIMES A DAY
     Route: 065
  5. ANAKINRA [Concomitant]
     Active Substance: ANAKINRA
     Indication: Product used for unknown indication
     Dosage: 100 MILLIGRAM, TWO TIMES A DAY(ON THE FIRST DAY, THEREAFTER 100 MG/DAY.)
     Route: 058

REACTIONS (2)
  - Rebound effect [Recovered/Resolved]
  - Drug ineffective [Unknown]
